FAERS Safety Report 5657562-6 (Version None)
Quarter: 2008Q1

REPORT INFORMATION
  Report Type: 
  Country: None (occurrence: None)
  Receive Date: 20080307
  Receipt Date: 20080307
  Transmission Date: 20080703
  Serious: Yes (Hospitalization, Other)
  Sender: FDA-Public Use
  Company Number: None

PATIENT
  Sex: Female
  Weight: 72.5755 kg

DRUGS (2)
  1. CHANTIX [Suspect]
     Indication: SMOKING CESSATION THERAPY
     Dosage: STARTER KIT AS WRITTEN PO REFILLS AS WRITTEN PO
     Route: 048
     Dates: start: 20070619, end: 20070718
  2. CHANTIX [Suspect]
     Indication: SMOKING CESSATION THERAPY
     Dosage: STARTER KIT AS WRITTEN PO REFILLS AS WRITTEN PO
     Route: 048
     Dates: start: 20070719, end: 20070823

REACTIONS (6)
  - CONFUSIONAL STATE [None]
  - CONVULSION [None]
  - DEPRESSION [None]
  - FEELING ABNORMAL [None]
  - INJURY [None]
  - LOSS OF CONSCIOUSNESS [None]
